FAERS Safety Report 9511024 (Version 1)
Quarter: 2013Q3

REPORT INFORMATION
  Report Type: Spontaneous
  Country: US (occurrence: None)
  Receive Date: 20130909
  Receipt Date: 20130909
  Transmission Date: 20140515
  Serious: No
  Sender: FDA-Public Use
  Company Number: None

PATIENT
  Age: 43 Year
  Sex: Male

DRUGS (1)
  1. HUMIRA [Suspect]
     Indication: COLITIS ULCERATIVE
     Dosage: 40MG  QOW  SQ
     Route: 058
     Dates: start: 20130716, end: 20130828

REACTIONS (3)
  - Chest pain [None]
  - Alopecia [None]
  - Muscular weakness [None]
